FAERS Safety Report 11537289 (Version 2)
Quarter: 2015Q4

REPORT INFORMATION
  Report Type: Spontaneous
  Country: US (occurrence: US)
  Receive Date: 20150922
  Receipt Date: 20151112
  Transmission Date: 20160304
  Serious: Yes (Other)
  Sender: FDA-Public Use
  Company Number: US-CELGENE-USA-2015091434

PATIENT
  Sex: Female

DRUGS (1)
  1. OTEZLA [Suspect]
     Active Substance: APREMILAST
     Indication: PSORIASIS
     Dosage: 60 MILLIGRAM
     Route: 048
     Dates: end: 20150922

REACTIONS (6)
  - Nausea [Recovering/Resolving]
  - Musculoskeletal discomfort [Unknown]
  - Abdominal pain [Unknown]
  - Unevaluable event [Unknown]
  - Headache [Unknown]
  - Diarrhoea [Recovering/Resolving]
